FAERS Safety Report 8579748-3 (Version None)
Quarter: 2012Q3

REPORT INFORMATION
  Report Type: 
  Country: None (occurrence: None)
  Receive Date: 20120808
  Receipt Date: 20120727
  Transmission Date: 20120928
  Serious: Yes (Hospitalization, Other)
  Sender: FDA-Public Use
  Company Number: US-ACTELION-A-NJ2011-56612

PATIENT
  Age: 58 Year
  Sex: Female

DRUGS (4)
  1. ADCIRCA [Concomitant]
  2. ASPIRIN [Concomitant]
  3. TRACLEER [Suspect]
     Dosage: UNK
     Route: 048
  4. TRACLEER [Suspect]
     Indication: PULMONARY ARTERIAL HYPERTENSION
     Dosage: UNK
     Route: 048
     Dates: end: 20110921

REACTIONS (2)
  - HEART RATE INCREASED [None]
  - ATRIAL SEPTAL DEFECT REPAIR [None]
